FAERS Safety Report 26206926 (Version 1)
Quarter: 2025Q4

REPORT INFORMATION
  Report Type: Report from Study
  Country: CA (occurrence: CA)
  Receive Date: 20251229
  Receipt Date: 20251229
  Transmission Date: 20260118
  Serious: Yes (Other)
  Sender: TAKEDA
  Company Number: CA-TAKEDA-2020TUS025043

PATIENT
  Age: 59 Year
  Sex: Female

DRUGS (7)
  1. VEDOLIZUMAB [Suspect]
     Active Substance: VEDOLIZUMAB
     Indication: Colitis ulcerative
     Dosage: 300 MILLIGRAM
  2. VEDOLIZUMAB [Suspect]
     Active Substance: VEDOLIZUMAB
     Dosage: 300 MILLIGRAM
  3. VEDOLIZUMAB [Suspect]
     Active Substance: VEDOLIZUMAB
     Dosage: 300 MILLIGRAM
  4. VEDOLIZUMAB [Suspect]
     Active Substance: VEDOLIZUMAB
     Dosage: 300 MILLIGRAM
  5. VEDOLIZUMAB [Suspect]
     Active Substance: VEDOLIZUMAB
     Dosage: 300 MILLIGRAM
  6. ASACOL [Concomitant]
     Active Substance: MESALAMINE
     Dosage: 800 MILLIGRAM, BID
  7. Cortiment [Concomitant]
     Dosage: UNK UNK, QD

REACTIONS (6)
  - Colitis ulcerative [Recovered/Resolved]
  - Diarrhoea [Recovered/Resolved]
  - Bowel movement irregularity [Unknown]
  - Abdominal pain [Unknown]
  - Vomiting [Recovered/Resolved]
  - Arthralgia [Recovering/Resolving]

NARRATIVE: CASE EVENT DATE: 20250925
